FAERS Safety Report 22082955 (Version 1)
Quarter: 2023Q1

REPORT INFORMATION
  Report Type: Spontaneous
  Country: SA (occurrence: SA)
  Receive Date: 20230310
  Receipt Date: 20230310
  Transmission Date: 20230418
  Serious: Yes (Hospitalization)
  Sender: FDA-Public Use
  Company Number: SA-STRIDES ARCOLAB LIMITED-2023SP003621

PATIENT
  Age: 29 Year
  Sex: Male

DRUGS (16)
  1. PREDNISOLONE [Suspect]
     Active Substance: PREDNISOLONE
     Indication: Immunosuppression
     Dosage: UNK (AFTER METHYLPREDNISOLONE TAPER, AS INDUCTION THERAPY)
     Route: 048
     Dates: start: 2018
  2. PREDNISOLONE [Suspect]
     Active Substance: PREDNISOLONE
     Indication: Intestinal transplant
     Dosage: UNK (AS MAINTENANCE THERAPY ALONG WITH TACROLIMUS AND SIROLIMUS)
     Route: 065
     Dates: start: 2018
  3. TACROLIMUS [Suspect]
     Active Substance: TACROLIMUS
     Indication: Immunosuppression
     Dosage: UNK (AS MAINTENANCE THERAPY ALONG WITH PREDNISOLONE AND SIROLIMUS)
     Route: 065
     Dates: start: 2018
  4. TACROLIMUS [Suspect]
     Active Substance: TACROLIMUS
     Indication: Intestinal transplant
  5. ALEMTUZUMAB [Suspect]
     Active Substance: ALEMTUZUMAB
     Indication: Immunosuppression
     Dosage: 30 MILLIGRAM (RECEIVED 1 DOSE) (INDUCTION)
     Route: 058
     Dates: start: 2018
  6. ALEMTUZUMAB [Suspect]
     Active Substance: ALEMTUZUMAB
     Indication: Intestinal transplant
  7. METHYLPREDNISOLONE [Suspect]
     Active Substance: METHYLPREDNISOLONE
     Indication: Immunosuppression
     Dosage: 500 MILLIGRAM (INDUCTION THERAPY)
     Route: 042
     Dates: start: 2018
  8. METHYLPREDNISOLONE [Suspect]
     Active Substance: METHYLPREDNISOLONE
     Indication: Intestinal transplant
     Dosage: 250 MILLIGRAM (INDUCTION THERAPY)
     Route: 042
     Dates: start: 2018
  9. METHYLPREDNISOLONE [Suspect]
     Active Substance: METHYLPREDNISOLONE
     Dosage: 125 MILLIGRAM (INDUCTION THERAPY)
     Route: 042
     Dates: start: 2018
  10. SIROLIMUS [Suspect]
     Active Substance: SIROLIMUS
     Indication: Immunosuppression
     Dosage: UNK (AS MAINTENANCE THERAPY ALONG WITH PREDNISOLONE AND TACROLIMUS)
     Route: 065
     Dates: start: 2018
  11. SIROLIMUS [Suspect]
     Active Substance: SIROLIMUS
     Indication: Intestinal transplant
  12. VALGANCICLOVIR [Concomitant]
     Active Substance: VALGANCICLOVIR
     Indication: Prophylaxis
     Dosage: 450 MILLIGRAM, DAILY
     Route: 048
  13. VALGANCICLOVIR [Concomitant]
     Active Substance: VALGANCICLOVIR
     Indication: Cytomegalovirus viraemia
     Dosage: 900 MILLIGRAM, EVERY 12 HRS
     Route: 048
  14. VALGANCICLOVIR [Concomitant]
     Active Substance: VALGANCICLOVIR
     Indication: Cytomegalovirus infection
     Dosage: 900 MILLIGRAM, EVERY 12 HRS
     Route: 048
  15. VALGANCICLOVIR [Concomitant]
     Active Substance: VALGANCICLOVIR
     Dosage: 450 MILLIGRAM, EVERY 12 HRS
     Route: 048
  16. VALGANCICLOVIR [Concomitant]
     Active Substance: VALGANCICLOVIR
     Dosage: 900 MILLIGRAM, EVERY 12 HRS
     Route: 048

REACTIONS (5)
  - Enteritis [Unknown]
  - Leukopenia [Unknown]
  - Cytomegalovirus infection [Recovered/Resolved]
  - Cytomegalovirus viraemia [Recovered/Resolved]
  - Thrombocytopenia [Unknown]

NARRATIVE: CASE EVENT DATE: 20180101
